FAERS Safety Report 25324916 (Version 1)
Quarter: 2025Q2

REPORT INFORMATION
  Report Type: Spontaneous
  Country: US (occurrence: None)
  Receive Date: 20250516
  Receipt Date: 20250516
  Transmission Date: 20250716
  Serious: Yes (Other)
  Sender: FDA-CTU
  Company Number: None

PATIENT
  Age: 60 Year
  Sex: Female
  Weight: 49.9 kg

DRUGS (1)
  1. TRAMADOL HYDROCHLORIDE [Suspect]
     Active Substance: TRAMADOL HYDROCHLORIDE
     Dates: start: 20250515, end: 20250516

REACTIONS (12)
  - Legal problem [None]
  - Atrial fibrillation [None]
  - Nausea [None]
  - Dizziness [None]
  - Asthenia [None]
  - Dyspnoea [None]
  - Diarrhoea [None]
  - Flatulence [None]
  - Hyperhidrosis [None]
  - Chills [None]
  - Gait inability [None]
  - Malaise [None]

NARRATIVE: CASE EVENT DATE: 20250516
